FAERS Safety Report 10675044 (Version 1)
Quarter: 2014Q4

REPORT INFORMATION
  Report Type: Report from Study
  Country: BR (occurrence: BR)
  Receive Date: 20141224
  Receipt Date: 20141224
  Transmission Date: 20150529
  Serious: Yes (Other)
  Sender: FDA-Public Use
  Company Number: PHHY2014BR168111

PATIENT
  Sex: Female

DRUGS (4)
  1. EXELON PATCH [Suspect]
     Active Substance: RIVASTIGMINE
     Indication: MEMORY IMPAIRMENT
     Dosage: 27 MG (15 CM2), QD
     Route: 062
  2. OMEGA                                   /ARG/ [Concomitant]
     Indication: MEMORY IMPAIRMENT
     Dosage: 1 DF, QHS
     Route: 065
  3. MENELAT [Concomitant]
     Active Substance: MIRTAZAPINE
     Indication: NERVOUS SYSTEM DISORDER
     Dosage: 1 DF, QHS
     Route: 065
  4. OS-CAL [Concomitant]
     Indication: BONE DISORDER
     Dosage: 1 DF, QHS
     Route: 065

REACTIONS (3)
  - Memory impairment [Unknown]
  - Pneumonia [Unknown]
  - Condition aggravated [Unknown]

NARRATIVE: CASE EVENT DATE: 2013
